FAERS Safety Report 25185881 (Version 1)
Quarter: 2025Q2

REPORT INFORMATION
  Report Type: Spontaneous
  Country: US (occurrence: US)
  Receive Date: 20250410
  Receipt Date: 20250410
  Transmission Date: 20250716
  Serious: Yes (Life-Threatening, Hospitalization)
  Sender: AMGEN
  Company Number: US-AMGEN-USASP2025065123

PATIENT
  Age: 49 Year
  Sex: Female

DRUGS (7)
  1. RITUXIMAB [Suspect]
     Active Substance: RITUXIMAB
     Indication: Pyelonephritis
     Dosage: UNK UNK, Q6MO
     Route: 065
  2. RITUXIMAB [Suspect]
     Active Substance: RITUXIMAB
     Indication: Granulomatosis with polyangiitis
  3. PREDNISONE [Suspect]
     Active Substance: PREDNISONE
     Indication: Pyelonephritis
     Dosage: UNK UNK, QD
     Route: 065
  4. PREDNISONE [Suspect]
     Active Substance: PREDNISONE
     Indication: Granulomatosis with polyangiitis
  5. METHOTREXATE [Concomitant]
     Active Substance: METHOTREXATE
     Indication: Pyelonephritis
     Route: 065
  6. METHOTREXATE [Concomitant]
     Active Substance: METHOTREXATE
     Indication: Granulomatosis with polyangiitis
  7. LEUCOVORIN [Concomitant]
     Active Substance: LEUCOVORIN\LEUCOVORIN CALCIUM

REACTIONS (8)
  - Acute respiratory failure [Unknown]
  - Encephalopathy [Unknown]
  - Pyelonephritis [Unknown]
  - Ureteritis [Unknown]
  - Mycoplasma test positive [Unknown]
  - Ureaplasma infection [Unknown]
  - Hyperammonaemia [Unknown]
  - Off label use [Unknown]
